FAERS Safety Report 24286340 (Version 3)
Quarter: 2024Q3

REPORT INFORMATION
  Report Type: Report from Study
  Country: EG (occurrence: EG)
  Receive Date: 20240905
  Receipt Date: 20240913
  Transmission Date: 20241016
  Serious: Yes (Other)
  Sender: NOVARTIS
  Company Number: EG-002147023-NVSC2024EG177409

PATIENT
  Age: 38 Year
  Sex: Female
  Weight: 70 kg

DRUGS (7)
  1. KISQALI [Suspect]
     Active Substance: RIBOCICLIB
     Indication: Breast cancer metastatic
     Dosage: 3 DOSAGE FORM, QD (3 TABLETS THEN 2 TABLETS)FOR 21 DAYS AND1WEEK OFF
     Route: 048
     Dates: start: 20240130
  2. KISQALI [Suspect]
     Active Substance: RIBOCICLIB
     Dosage: 3 DOSAGE FORM, QD (3 TABLETS THEN 2 TABLETS)FOR 21 DAYS AND1WEEK OFF
     Route: 048
  3. KISQALI [Suspect]
     Active Substance: RIBOCICLIB
     Dosage: 2 DOSAGE FORM, QD (REDUCED FROM 3 TABLETS TO 2 TABLETS (400 MG ) ONCE DAILY FOR 21 DAYS AND ONE WEEK
     Route: 048
     Dates: start: 202405
  4. FASLODEX [Suspect]
     Active Substance: FULVESTRANT
     Indication: Hormone therapy
     Dosage: 500 MG, Q4W (TWO INJECTIONS (500 MG) EVERY 28 DAYS)
     Route: 030
     Dates: start: 20240120
  5. GOSERELIN [Suspect]
     Active Substance: GOSERELIN
     Indication: Hormone therapy
     Dosage: 3.6 MG, Q4W (ONE INJECTION EVERY 28 DAYS)
     Route: 058
     Dates: start: 20240120
  6. XGEVA [Suspect]
     Active Substance: DENOSUMAB
     Indication: Hormone therapy
     Dosage: 120 MG, QMO (1 INJECTION EVERY MONTH)
     Route: 058
     Dates: start: 20240120
  7. XGEVA [Suspect]
     Active Substance: DENOSUMAB
     Dosage: 120 MG, Q3MO (NOW 1 INJECTION EVERY 3 MONTHS)
     Route: 058

REACTIONS (8)
  - Electrocardiogram QT prolonged [Recovered/Resolved]
  - Electrocardiogram QT prolonged [Unknown]
  - Oral pain [Not Recovered/Not Resolved]
  - Mouth ulceration [Not Recovered/Not Resolved]
  - Onychalgia [Recovering/Resolving]
  - Fatigue [Recovering/Resolving]
  - Alopecia [Unknown]
  - Off label use [Unknown]

NARRATIVE: CASE EVENT DATE: 20240130
